FAERS Safety Report 9996008 (Version 1)
Quarter: 2014Q1

REPORT INFORMATION
  Report Type: Spontaneous
  Country: US (occurrence: None)
  Receive Date: 20140310
  Receipt Date: 20140310
  Transmission Date: 20141002
  Serious: No
  Sender: FDA-Public Use
  Company Number: None

PATIENT
  Sex: Male

DRUGS (1)
  1. ZYTIGA 250MG JANSSEN BIOTECH [Suspect]
     Indication: PROSTATE CANCER
     Route: 048
     Dates: start: 20130719, end: 20140211

REACTIONS (1)
  - Adverse drug reaction [None]
